FAERS Safety Report 5295935-4 (Version None)
Quarter: 2007Q1

REPORT INFORMATION
  Report Type: 
  Country: None (occurrence: None)
  Receive Date: 20070201
  Receipt Date: 20061018
  Transmission Date: 20070707
  Serious: No
  Sender: FDA-Public Use
  Company Number: 2006PV023496

PATIENT
  Age: 58 Year
  Sex: Female
  Weight: 93.441 kg

DRUGS (8)
  1. BYETTA [Suspect]
     Indication: DIABETES MELLITUS NON-INSULIN-DEPENDENT
     Dosage: 5; 10 MCG; BID; SC
     Route: 058
     Dates: start: 20061018, end: 20061029
  2. BYETTA [Suspect]
     Indication: DIABETES MELLITUS NON-INSULIN-DEPENDENT
     Dosage: 5; 10 MCG; BID; SC
     Route: 058
     Dates: start: 20061101
  3. INSULIN [Concomitant]
  4. METFORMIN HCL [Concomitant]
  5. AVANDIA [Concomitant]
  6. CADUET [Concomitant]
  7. NORVASC [Concomitant]
  8. LIPITOR [Concomitant]

REACTIONS (4)
  - ABDOMINAL DISTENSION [None]
  - BLOOD GLUCOSE INCREASED [None]
  - DECREASED APPETITE [None]
  - INJECTION SITE EXTRAVASATION [None]
